FAERS Safety Report 15798736 (Version 1)
Quarter: 2019Q1

REPORT INFORMATION
  Report Type: Spontaneous
  Country: US (occurrence: US)
  Receive Date: 20190108
  Receipt Date: 20190108
  Transmission Date: 20190417
  Serious: No
  Sender: FDA-Public Use
  Company Number: US-SA-2018SA040763

PATIENT
  Age: 68 Year
  Sex: Male

DRUGS (4)
  1. ARAVA [Suspect]
     Active Substance: LEFLUNOMIDE
     Indication: RHEUMATOID ARTHRITIS
     Dosage: UNK UNK,UNK
     Route: 048
     Dates: start: 201707, end: 201708
  2. ENBREL [Concomitant]
     Active Substance: ETANERCEPT
  3. ARAVA [Suspect]
     Active Substance: LEFLUNOMIDE
     Dosage: 200 MG, QOW
     Route: 058
     Dates: start: 20180523
  4. METHOTREXATE. [Concomitant]
     Active Substance: METHOTREXATE

REACTIONS (2)
  - Adverse drug reaction [Unknown]
  - Drug ineffective [Unknown]
